FAERS Safety Report 24770795 (Version 1)
Quarter: 2024Q4

REPORT INFORMATION
  Report Type: Report from Study
  Country: DE (occurrence: DE)
  Receive Date: 20241224
  Receipt Date: 20241224
  Transmission Date: 20250114
  Serious: Yes (Hospitalization)
  Sender: ROCHE
  Company Number: DE-ROCHE-10000102664

PATIENT
  Age: 25 Year
  Sex: Male
  Weight: 53 kg

DRUGS (1)
  1. EVRYSDI [Suspect]
     Active Substance: RISDIPLAM
     Indication: Spinal muscular atrophy
     Dosage: LAST DOSE: 30/SEP/2024?DOSE: STANDARD
     Route: 048
     Dates: start: 20230201

REACTIONS (3)
  - Joint injury [Recovered/Resolved]
  - Fatigue [Unknown]
  - Pneumonia aspiration [Recovered/Resolved]

NARRATIVE: CASE EVENT DATE: 20230201
